FAERS Safety Report 26082670 (Version 1)
Quarter: 2025Q4

REPORT INFORMATION
  Report Type: Spontaneous
  Country: US (occurrence: None)
  Receive Date: 20251122
  Receipt Date: 20251122
  Transmission Date: 20260117
  Serious: Yes (Hospitalization)
  Sender: FDA-CTU
  Company Number: None

PATIENT
  Sex: Female

DRUGS (2)
  1. SOMAVERT [Suspect]
     Active Substance: PEGVISOMANT
     Indication: Acromegaly
     Route: 058
     Dates: start: 20241205
  2. SOMAVERT [Suspect]
     Active Substance: PEGVISOMANT
     Indication: Sotos^ syndrome

REACTIONS (5)
  - Therapy interrupted [None]
  - Arthralgia [None]
  - Pain in extremity [None]
  - Injection site reaction [None]
  - Injection site pain [None]
